FAERS Safety Report 9344514 (Version 1)
Quarter: 2013Q2

REPORT INFORMATION
  Report Type: Spontaneous
  Country: US (occurrence: US)
  Receive Date: 20130612
  Receipt Date: 20130612
  Transmission Date: 20140414
  Serious: Yes (Other)
  Sender: FDA-Public Use
  Company Number: US-ELI_LILLY_AND_COMPANY-US201306000872

PATIENT
  Age: 81 Year
  Sex: Female

DRUGS (2)
  1. FORTEO [Suspect]
     Indication: OSTEOPOROSIS
     Dosage: 20 UG, QD
     Dates: start: 20130531
  2. SOTALOL [Concomitant]
     Indication: HEART RATE IRREGULAR
     Dosage: 80 MG, UNK

REACTIONS (7)
  - Haemorrhage [Unknown]
  - Heart rate irregular [Unknown]
  - Insomnia [Unknown]
  - Headache [Unknown]
  - Memory impairment [Recovered/Resolved]
  - Drug dose omission [Recovered/Resolved]
  - Injection site bruising [Unknown]
